FAERS Safety Report 9407893 (Version 1)
Quarter: 2013Q3

REPORT INFORMATION
  Report Type: Spontaneous
  Country: US (occurrence: None)
  Receive Date: 20130717
  Receipt Date: 20130717
  Transmission Date: 20140515
  Serious: Yes (Life-Threatening, Hospitalization)
  Sender: FDA-Public Use
  Company Number: None

PATIENT
  Age: 56 Year
  Sex: Male

DRUGS (3)
  1. PANTOPRAZOLE [Suspect]
     Indication: PAIN
     Route: 048
     Dates: start: 20130228, end: 20130301
  2. PANTOPRAZOLE [Suspect]
     Indication: GASTRITIS
     Route: 048
     Dates: start: 20130228, end: 20130301
  3. LISINOPRIL [Suspect]
     Indication: HYPERTENSION
     Route: 048
     Dates: start: 20071218, end: 20130301

REACTIONS (6)
  - Tachycardia [None]
  - Anxiety [None]
  - Chest pain [None]
  - Gastrooesophageal reflux disease [None]
  - Depression [None]
  - Angioedema [None]
